FAERS Safety Report 18047984 (Version 1)
Quarter: 2020Q3

REPORT INFORMATION
  Report Type: Spontaneous
  Country: US (occurrence: US)
  Receive Date: 20200720
  Receipt Date: 20200720
  Transmission Date: 20201103
  Serious: Yes (Other)
  Sender: FDA-Public Use
  Company Number: None

PATIENT
  Sex: Male

DRUGS (5)
  1. FLECAINIDE [Suspect]
     Active Substance: FLECAINIDE
  2. HUMIRA [Suspect]
     Active Substance: ADALIMUMAB
     Route: 058
     Dates: start: 20160802
  3. TAMSULOSIN [Suspect]
     Active Substance: TAMSULOSIN
  4. OXYCODONE AND ACETAMINOPHEN [Suspect]
     Active Substance: ACETAMINOPHEN\OXYCODONE HYDROCHLORIDE
  5. ELIQUIS [Suspect]
     Active Substance: APIXABAN

REACTIONS (2)
  - Surgery [None]
  - Pain [None]
